FAERS Safety Report 6495863-2 (Version None)
Quarter: 2009Q4

REPORT INFORMATION
  Report Type: 
  Country: None (occurrence: None)
  Receive Date: 20091214
  Receipt Date: 20090824
  Transmission Date: 20100525
  Serious: No
  Sender: FDA-Public Use
  Company Number: US-BRISTOL-MYERS SQUIBB COMPANY-14749659

PATIENT
  Age: 18 Year
  Sex: Female

DRUGS (3)
  1. ABILIFY [Suspect]
     Indication: BIPOLAR DISORDER
     Dosage: 1 DOSAGE FORM = 2MG1/2 TABS,18AUG09 OR 19AUG09:1/2 TABS
     Dates: start: 20090306
  2. ABILIFY [Suspect]
     Indication: DEPRESSION
     Dosage: 1 DOSAGE FORM = 2MG1/2 TABS,18AUG09 OR 19AUG09:1/2 TABS
     Dates: start: 20090306
  3. ZOLOFT [Concomitant]

REACTIONS (4)
  - CHEST PAIN [None]
  - MEDICATION ERROR [None]
  - NAUSEA [None]
  - RETCHING [None]
